FAERS Safety Report 7589549-0 (Version None)
Quarter: 2011Q3

REPORT INFORMATION
  Report Type: 
  Country: None (occurrence: None)
  Receive Date: 20110705
  Receipt Date: 20110630
  Transmission Date: 20111222
  Serious: Yes (Other)
  Sender: FDA-Public Use
  Company Number: GB-PFIZER INC-2011147275

PATIENT
  Age: 52 Year
  Sex: Male

DRUGS (4)
  1. LITHIUM CARBONATE [Concomitant]
     Dosage: UNK
  2. LEVOTHYROXINE [Concomitant]
     Dosage: UNK
  3. VENLAFAXINE HCL [Suspect]
     Dosage: 375 MG, UNK
     Route: 002
     Dates: start: 20110501
  4. PERICIAZINE [Concomitant]
     Dosage: UNK

REACTIONS (2)
  - PAIN [None]
  - PRIAPISM [None]
